FAERS Safety Report 23366959 (Version 2)
Quarter: 2024Q1

REPORT INFORMATION
  Report Type: Spontaneous
  Country: US (occurrence: US)
  Receive Date: 20240104
  Receipt Date: 20240129
  Transmission Date: 20240410
  Serious: Yes (Hospitalization)
  Sender: FDA-Public Use
  Company Number: US-BIOMARINAP-US-2023-154897

PATIENT

DRUGS (1)
  1. NAGLAZYME [Suspect]
     Active Substance: GALSULFASE
     Indication: Mucopolysaccharidosis VI
     Dosage: 10 MILLIGRAM, QW
     Route: 042
     Dates: start: 202309

REACTIONS (3)
  - Gastrointestinal viral infection [Unknown]
  - Dehydration [Unknown]
  - Pyrexia [Unknown]

NARRATIVE: CASE EVENT DATE: 20231221
